FAERS Safety Report 18793198 (Version 1)
Quarter: 2021Q1

REPORT INFORMATION
  Report Type: Spontaneous
  Country: US (occurrence: US)
  Receive Date: 20210127
  Receipt Date: 20210127
  Transmission Date: 20210419
  Serious: Yes (Hospitalization, Other)
  Sender: FDA-Public Use
  Company Number: US-VISTAPHARM, INC.-VER202012-002236

PATIENT
  Sex: Female
  Weight: 60.78 kg

DRUGS (2)
  1. LORTAB [Concomitant]
     Active Substance: ACETAMINOPHEN\HYDROCODONE BITARTRATE
     Indication: PAIN
     Dosage: 10 MG?300 MG/15 ML
     Route: 048
     Dates: start: 20200608
  2. HYDROCODONE AND ACETAMINOPHEN [Suspect]
     Active Substance: ACETAMINOPHEN\HYDROCODONE
     Indication: TOOTHACHE
     Dosage: 7.5 MG/325 MG/15 ML
     Route: 048
     Dates: start: 20201113

REACTIONS (2)
  - Anaphylactic reaction [Unknown]
  - Product use complaint [Unknown]
